FAERS Safety Report 9232327 (Version 1)
Quarter: 2013Q2

REPORT INFORMATION
  Report Type: Spontaneous
  Country: PL (occurrence: PL)
  Receive Date: 20130416
  Receipt Date: 20130416
  Transmission Date: 20140414
  Serious: Yes (Other)
  Sender: FDA-Public Use
  Company Number: PL-RANBAXY-2013R1-67213

PATIENT
  Age: 35 Year
  Sex: Female

DRUGS (3)
  1. PARACETAMOL [Suspect]
     Indication: NASOPHARYNGITIS
     Dosage: UNK
     Route: 065
  2. IMATINIB [Suspect]
     Indication: CHRONIC MYELOID LEUKAEMIA
     Dosage: 400 MG/DAY
     Route: 065
     Dates: start: 200505
  3. NILOTINIB [Suspect]
     Indication: PRODUCT USED FOR UNKNOWN INDICATION
     Dosage: 2 X 400 MG/DAY
     Route: 065
     Dates: start: 200611

REACTIONS (3)
  - Hepatotoxicity [Recovering/Resolving]
  - Rash [Recovering/Resolving]
  - Erythema [None]
